FAERS Safety Report 7428266-4 (Version None)
Quarter: 2011Q2

REPORT INFORMATION
  Report Type: 
  Country: None (occurrence: None)
  Receive Date: 20110421
  Receipt Date: 20110413
  Transmission Date: 20111010
  Serious: No
  Sender: FDA-Public Use
  Company Number: US-BIOGENIDEC-2011BI014365

PATIENT
  Age: 41 Year
  Sex: Female

DRUGS (3)
  1. SOLU-MEDROL [Concomitant]
     Dates: start: 20110406
  2. AVONEX [Concomitant]
     Indication: MULTIPLE SCLEROSIS
     Route: 030
  3. TYSABRI [Suspect]
     Indication: MULTIPLE SCLEROSIS
     Route: 042
     Dates: start: 20100924

REACTIONS (3)
  - TREMOR [None]
  - HYPOAESTHESIA [None]
  - PAIN [None]
